FAERS Safety Report 5274981-0 (Version None)
Quarter: 2007Q1

REPORT INFORMATION
  Report Type: 
  Country: None (occurrence: None)
  Receive Date: 20061207
  Receipt Date: 20040923
  Transmission Date: 20070707
  Serious: No
  Sender: FDA-Public Use
  Company Number: 2004UW19941

PATIENT
  Age: 63 Year
  Sex: Male
  Weight: 68.0396 kg

DRUGS (1)
  1. TOPROL-XL [Suspect]
     Indication: ARRHYTHMIA
     Dosage: 50 MG QD PO
     Route: 048
     Dates: start: 20040901

REACTIONS (2)
  - HEART RATE INCREASED [None]
  - VENTRICULAR TACHYCARDIA [None]
